FAERS Safety Report 5147612-8 (Version None)
Quarter: 2006Q4

REPORT INFORMATION
  Report Type: 
  Country: None (occurrence: None)
  Receive Date: 20061110
  Receipt Date: 20061102
  Transmission Date: 20070319
  Serious: Yes (Hospitalization, Other)
  Sender: FDA-Public Use
  Company Number: US-JNJFOC-20061001530

PATIENT
  Sex: Female
  Weight: 69.4 kg

DRUGS (18)
  1. REMICADE [Suspect]
  2. REMICADE [Suspect]
  3. REMICADE [Suspect]
     Indication: CROHN'S DISEASE
  4. FIORICET [Concomitant]
  5. TOPAMAX [Concomitant]
  6. ATARAX [Concomitant]
  7. ANUSOL [Concomitant]
  8. MERCAPTOPURINE [Concomitant]
     Indication: CROHN'S DISEASE
     Dosage: 50 MG 1 OR 2 PER DAY
  9. ATENOLOL [Concomitant]
  10. LEVOTHYROXINE SODIUM [Concomitant]
  11. NEURONTIN [Concomitant]
  12. OMEPRAZOLE [Concomitant]
  13. RESTORIL [Concomitant]
  14. ASACOL [Concomitant]
     Indication: CROHN'S DISEASE
  15. FOLIC ACID [Concomitant]
  16. TYLENOL W/ CODEINE [Concomitant]
  17. TRIAMCINOLONE [Concomitant]
     Indication: STOMATITIS
     Route: 061
  18. XANAX [Concomitant]

REACTIONS (1)
  - HISTOPLASMOSIS [None]
